FAERS Safety Report 24384772 (Version 1)
Quarter: 2024Q4

REPORT INFORMATION
  Report Type: Spontaneous
  Country: US (occurrence: US)
  Receive Date: 20241001
  Receipt Date: 20241001
  Transmission Date: 20250115
  Serious: Yes (Hospitalization, Other)
  Sender: PFIZER
  Company Number: US-PFIZER INC-202400263934

PATIENT
  Age: 55 Year
  Sex: Male
  Weight: 99.79 kg

DRUGS (2)
  1. FUROSEMIDE [Suspect]
     Active Substance: FUROSEMIDE
     Indication: Fluid retention
     Dosage: 40 MG
     Route: 042
     Dates: start: 202409
  2. FUROSEMIDE [Suspect]
     Active Substance: FUROSEMIDE
     Dosage: TAKING 3 TABLETS AT AT TIME, FOR TOTAL OF 60 MG, ONCE A DAY.
     Dates: start: 202409

REACTIONS (8)
  - Limb injury [Recovering/Resolving]
  - Dehydration [Recovering/Resolving]
  - Near death experience [Recovering/Resolving]
  - Burning sensation [Recovering/Resolving]
  - Weight decreased [Recovering/Resolving]
  - Urine output decreased [Recovered/Resolved]
  - Genital swelling [Not Recovered/Not Resolved]
  - Peripheral swelling [Not Recovered/Not Resolved]

NARRATIVE: CASE EVENT DATE: 20240901
